FAERS Safety Report 4706434-X (Version None)
Quarter: 2005Q2

REPORT INFORMATION
  Report Type: 
  Country: None (occurrence: None)
  Receive Date: 20050113
  Receipt Date: 20050113
  Transmission Date: 20051028
  Serious: No
  Sender: FDA-Public Use
  Company Number: None

PATIENT
  Age: 79 Year
  Sex: Female

DRUGS (2)
  1. GENERIC VICODIN [Suspect]
     Indication: ARTHRITIS
     Dosage: 5/500 Q 4-6 HOURS
     Dates: start: 20040901
  2. GENERIC VICODIN [Suspect]
     Indication: BURSITIS
     Dosage: 5/500 Q 4-6 HOURS
     Dates: start: 20040901

REACTIONS (3)
  - DIZZINESS [None]
  - DRUG EFFECT DECREASED [None]
  - VISION BLURRED [None]
